FAERS Safety Report 7018079-X (Version None)
Quarter: 2010Q3

REPORT INFORMATION
  Report Type: 
  Country: None (occurrence: None)
  Receive Date: 20100922
  Receipt Date: 20060425
  Transmission Date: 20110219
  Serious: Yes (Disabling)
  Sender: FDA-Public Use
  Company Number: CA-SEPTODONT-200600188

PATIENT
  Age: 38 Year
  Sex: Male

DRUGS (1)
  1. SEPTANEST SP (ARTICAINE HCL 4% WITH EPINEPHRINE 1:1000,000 INJECTION) [Suspect]
     Indication: LOCAL ANAESTHESIA
     Dosage: DENTAL
     Route: 004
     Dates: start: 20021029

REACTIONS (6)
  - CHOROIDITIS [None]
  - MACULAR SCAR [None]
  - METAMORPHOPSIA [None]
  - RETINAL EXUDATES [None]
  - RETINAL HAEMORRHAGE [None]
  - RETINAL PIGMENT EPITHELIOPATHY [None]
